FAERS Safety Report 5133954-9 (Version None)
Quarter: 2006Q4

REPORT INFORMATION
  Report Type: 
  Country: None (occurrence: None)
  Receive Date: 20061018
  Receipt Date: 20061005
  Transmission Date: 20070319
  Serious: Yes (Hospitalization, Other)
  Sender: FDA-Public Use
  Company Number: FABR-11461

PATIENT
  Age: 47 Year
  Sex: Female
  Weight: 55 kg

DRUGS (5)
  1. FABRAZYME [Suspect]
     Indication: FABRY'S DISEASE
     Dosage: 56 MG, Q2WKS; IV
     Route: 042
     Dates: start: 20061001
  2. TYLENOL [Concomitant]
  3. PREDNISONE TAB [Concomitant]
  4. BENADRYL [Concomitant]
  5. GABAPENTIN [Concomitant]

REACTIONS (5)
  - BACTERIAL INFECTION [None]
  - BLOOD CULTURE POSITIVE [None]
  - CATHETER RELATED INFECTION [None]
  - FATIGUE [None]
  - PAIN [None]
